FAERS Safety Report 7393841-2 (Version None)
Quarter: 2011Q2

REPORT INFORMATION
  Report Type: 
  Country: None (occurrence: None)
  Receive Date: 20110405
  Receipt Date: 20101015
  Transmission Date: 20111010
  Serious: Yes (Other)
  Sender: FDA-Public Use
  Company Number: US-BAYER-200943903NA

PATIENT
  Sex: Female
  Weight: 91.4 kg

DRUGS (10)
  1. YAZ [Suspect]
     Indication: CONTRACEPTION
     Dosage: UNK
     Dates: start: 20071230, end: 20090721
  2. LITHIUM [Concomitant]
     Indication: BIPOLAR DISORDER
     Dosage: UNK
     Dates: start: 20070101, end: 20080101
  3. BENZTROPINE MESYLATE [Concomitant]
     Dosage: UNK
     Dates: start: 20070101, end: 20090101
  4. KEPPRA [Concomitant]
     Dosage: UNK
     Dates: start: 20071201, end: 20081201
  5. ABILIFY [Concomitant]
     Indication: BIPOLAR DISORDER
     Dosage: UNK
     Dates: start: 20070101, end: 20090101
  6. COMBIVENT [Concomitant]
     Indication: ASTHMA
     Dosage: UNK
     Dates: start: 20070101, end: 20090101
  7. ADVAIR DISKUS 100/50 [Concomitant]
     Indication: ASTHMA
     Dosage: UNK
     Dates: start: 20070201, end: 20090901
  8. PRILOSEC [Concomitant]
     Indication: ABDOMINAL PAIN UPPER
     Dosage: UNK
  9. TRAZODONE HCL [Concomitant]
     Dosage: UNK
     Dates: start: 20080101, end: 20090101
  10. CONCERTA [Concomitant]
     Indication: ATTENTION DEFICIT/HYPERACTIVITY DISORDER
     Dosage: UNK
     Dates: start: 20070101, end: 20090101

REACTIONS (4)
  - CHOLECYSTITIS [None]
  - GALLBLADDER DISORDER [None]
  - PAIN [None]
  - BILIARY DYSKINESIA [None]
